FAERS Safety Report 9008943 (Version 12)
Quarter: 2013Q3

REPORT INFORMATION
  Report Type: Spontaneous
  Country: US (occurrence: US)
  Receive Date: 20130111
  Receipt Date: 20130705
  Transmission Date: 20140515
  Serious: No
  Sender: FDA-Public Use
  Company Number: US-009507513-1301USA004257

PATIENT
  Age: 55 Year
  Sex: Female

DRUGS (3)
  1. PEGINTRON [Suspect]
     Indication: HEPATITIS C
     Dosage: 120 MICROGRAM, WEEKLY, STRENGTH: 120 MCG 1 STANDARD DOSE OF 1: REDIPEN
     Route: 058
     Dates: start: 20130106
  2. REBETOL [Suspect]
     Indication: HEPATITIS C
     Dosage: UNK
     Route: 048
     Dates: start: 20130106
  3. PENICILLIN (UNSPECIFIED) [Concomitant]

REACTIONS (39)
  - Dizziness [Unknown]
  - Insomnia [Unknown]
  - Dysgeusia [Unknown]
  - Pyrexia [Unknown]
  - Myalgia [Unknown]
  - Back pain [Unknown]
  - Dysgeusia [Unknown]
  - Dysgeusia [Unknown]
  - Dysgeusia [Unknown]
  - Irritability [Unknown]
  - Fatigue [Unknown]
  - Malaise [Unknown]
  - Pyrexia [Unknown]
  - Malaise [Unknown]
  - Irritability [Unknown]
  - Depression [Unknown]
  - Device malfunction [Recovered/Resolved]
  - Accidental exposure to product [Unknown]
  - Product quality issue [Unknown]
  - Injection site haemorrhage [Recovered/Resolved]
  - Urticaria [Recovered/Resolved]
  - Drug hypersensitivity [Recovered/Resolved]
  - Irritability [Unknown]
  - Decreased appetite [Unknown]
  - Drug dose omission [Unknown]
  - Inappropriate schedule of drug administration [Unknown]
  - Influenza like illness [Unknown]
  - Memory impairment [Unknown]
  - Irritability [Unknown]
  - Gastrointestinal disorder [Unknown]
  - Abdominal hernia [Unknown]
  - Cough [Unknown]
  - Dyspnoea [Unknown]
  - Dysgeusia [Unknown]
  - Memory impairment [Unknown]
  - Cough [Unknown]
  - Feeling abnormal [Unknown]
  - Oral discomfort [Unknown]
  - Candida infection [Unknown]
